FAERS Safety Report 7969599-2 (Version None)
Quarter: 2011Q4

REPORT INFORMATION
  Report Type: 
  Country: None (occurrence: None)
  Receive Date: 20111212
  Receipt Date: 20111207
  Transmission Date: 20120403
  Serious: Yes (Other)
  Sender: FDA-Public Use
  Company Number: FR-PFIZER INC-2011298143

PATIENT
  Age: 37 Year
  Sex: Female

DRUGS (1)
  1. DOSTINEX [Suspect]
     Dosage: 6 DF, WEEKLY
     Dates: start: 20040101

REACTIONS (1)
  - PULMONARY ARTERIAL HYPERTENSION [None]
